FAERS Safety Report 4905081-4 (Version None)
Quarter: 2006Q1

REPORT INFORMATION
  Report Type: 
  Country: None (occurrence: None)
  Receive Date: 20060208
  Receipt Date: 20051111
  Transmission Date: 20060701
  Serious: No
  Sender: FDA-Public Use
  Company Number: US-GLAXOSMITHKLINE-A0581959A

PATIENT
  Age: 64 Year
  Sex: Female

DRUGS (11)
  1. PAXIL [Suspect]
     Indication: DEPRESSION
     Dosage: 10MG PER DAY
     Route: 048
     Dates: start: 19980101
  2. VASOTEC RPD [Concomitant]
  3. THYROID TAB [Concomitant]
  4. FOSAMAX [Concomitant]
  5. ZYRTEC [Concomitant]
  6. PREMARIN [Concomitant]
  7. NATURAL PROGESTERONE [Concomitant]
  8. SINEMET [Concomitant]
  9. POTASSIUM [Concomitant]
  10. RESTASIS [Concomitant]
  11. PATANOL [Concomitant]

REACTIONS (2)
  - INSOMNIA [None]
  - MALAISE [None]
